FAERS Safety Report 22594896 (Version 1)
Quarter: 2023Q2

REPORT INFORMATION
  Report Type: Spontaneous
  Country: US (occurrence: None)
  Receive Date: 20230612
  Receipt Date: 20230612
  Transmission Date: 20230722
  Serious: Yes (Life-Threatening)
  Sender: FDA-Public Use
  Company Number: None

PATIENT
  Age: 47 Year
  Sex: Female
  Weight: 90.9 kg

DRUGS (4)
  1. CLONIDINE HYDROCHLORIDE [Suspect]
     Active Substance: CLONIDINE HYDROCHLORIDE
     Indication: Insomnia
     Dosage: OTHER QUANTITY : 1 TABLET(S);?FREQUENCY : AT BEDTIME;?
     Route: 048
     Dates: start: 20230320, end: 20230603
  2. TOPAMAX [Concomitant]
     Active Substance: TOPIRAMATE
  3. LEXAPRO [Concomitant]
     Active Substance: ESCITALOPRAM OXALATE
  4. STRATTERA [Concomitant]

REACTIONS (13)
  - Eating disorder [None]
  - Nausea [None]
  - Weight decreased [None]
  - Gastrointestinal disorder [None]
  - Gallbladder disorder [None]
  - Gastrointestinal pain [None]
  - Abdominal pain upper [None]
  - Dehydration [None]
  - Emotional distress [None]
  - Dysphagia [None]
  - Fatigue [None]
  - Intestinal pseudo-obstruction [None]
  - Constipation [None]

NARRATIVE: CASE EVENT DATE: 20230530
